FAERS Safety Report 8363663-4 (Version None)
Quarter: 2012Q2

REPORT INFORMATION
  Report Type: 
  Country: None (occurrence: None)
  Receive Date: 20120516
  Receipt Date: 20120507
  Transmission Date: 20120825
  Serious: Yes (Death)
  Sender: FDA-Public Use
  Company Number: BE-JNJFOC-20120508838

PATIENT
  Sex: Female

DRUGS (10)
  1. SIMVASTATIN [Concomitant]
  2. QUINAPRIL [Concomitant]
  3. SPIRONOLACTONE [Concomitant]
  4. DIGOXIN [Concomitant]
  5. METFORMIN HCL [Concomitant]
  6. GLICLAZIDE [Concomitant]
  7. BUMETANIDE [Concomitant]
  8. ASPIRIN [Concomitant]
  9. XARELTO [Suspect]
     Indication: CEREBROVASCULAR ACCIDENT PROPHYLAXIS
     Route: 065
     Dates: start: 20120126
  10. BISOPROLOL FUMARATE [Concomitant]

REACTIONS (1)
  - SUDDEN DEATH [None]
